FAERS Safety Report 8693171 (Version 2)
Quarter: 2012Q4

REPORT INFORMATION
  Report Type: 
  Country: US (occurrence: US)
  Receive Date: 20120730
  Receipt Date: 20120924
  Transmission Date: 20130627
  Serious: No
  Sender: FDA-Public Use
  Company Number: US-BAYER-2012-076114

PATIENT
  Age: 54 Year
  Sex: Male

DRUGS (7)
  1. LEVITRA [Suspect]
     Indication: ERECTILE DYSFUNCTION
     Dosage: 20 mg 1 hour prior to sex
     Dates: start: 201001
  2. LEVITRA [Suspect]
     Indication: ERECTILE DYSFUNCTION
  3. GLIPIZIDE [Concomitant]
  4. METFORMIN [Concomitant]
  5. BENICAR [Concomitant]
  6. BABY ASPIRIN [Concomitant]
  7. JANUVIA [Concomitant]

REACTIONS (2)
  - Erectile dysfunction [None]
  - Erectile dysfunction [None]
